FAERS Safety Report 20305270 (Version 2)
Quarter: 2022Q1

REPORT INFORMATION
  Report Type: Spontaneous
  Country: US (occurrence: US)
  Receive Date: 20220106
  Receipt Date: 20220204
  Transmission Date: 20220424
  Serious: No
  Sender: FDA-Public Use
  Company Number: US-PFIZER INC-202101826509

PATIENT
  Age: 31 Year
  Sex: Female

DRUGS (1)
  1. DEPO-PROVERA [Suspect]
     Active Substance: MEDROXYPROGESTERONE ACETATE
     Dosage: 104MG/0.65ML, UNDER THE SKIN OF THE STOMACH OR THIGH EVERY 84 DAYS
     Route: 058
     Dates: start: 20211219

REACTIONS (2)
  - Incorrect dose administered [Unknown]
  - Device mechanical issue [Unknown]

NARRATIVE: CASE EVENT DATE: 20211219
